FAERS Safety Report 11283300 (Version 4)
Quarter: 2015Q3

REPORT INFORMATION
  Report Type: Spontaneous
  Country: US (occurrence: US)
  Receive Date: 20150720
  Receipt Date: 20150928
  Transmission Date: 20151125
  Serious: Yes (Hospitalization, Disabling)
  Sender: FDA-Public Use
  Company Number: US-GLAXOSMITHKLINE-US2015GSK103194

PATIENT
  Age: 82 Year
  Sex: Female

DRUGS (3)
  1. MEKINIST [Suspect]
     Active Substance: TRAMETINIB DIMETHYL SULFOXIDE
     Dosage: 2 MG, QD
     Route: 048
     Dates: start: 20150703
  2. MEKINIST [Suspect]
     Active Substance: TRAMETINIB DIMETHYL SULFOXIDE
     Indication: MALIGNANT MELANOMA
     Dosage: 2 MG, QD
     Route: 048
     Dates: start: 20150623
  3. TAFINLAR [Suspect]
     Active Substance: DABRAFENIB MESYLATE
     Indication: MALIGNANT MELANOMA
     Dosage: 75 MG, U
     Route: 048
     Dates: start: 20150623

REACTIONS (9)
  - Fatigue [Recovering/Resolving]
  - Rash [Recovering/Resolving]
  - Urticaria [Unknown]
  - Memory impairment [Not Recovered/Not Resolved]
  - Crying [Unknown]
  - Erythema [Unknown]
  - Pruritus [Recovering/Resolving]
  - Ill-defined disorder [Unknown]
  - Surgery [Recovered/Resolved]

NARRATIVE: CASE EVENT DATE: 2015
